FAERS Safety Report 13668856 (Version 1)
Quarter: 2017Q2

REPORT INFORMATION
  Report Type: Spontaneous
  Country: FR (occurrence: FR)
  Receive Date: 20170620
  Receipt Date: 20170620
  Transmission Date: 20170830
  Serious: Yes (Life-Threatening, Hospitalization, Other)
  Sender: FDA-Public Use
  Company Number: FR-ELI_LILLY_AND_COMPANY-FR201702000173

PATIENT
  Age: 34 Year
  Sex: Male

DRUGS (2)
  1. MIDAZOLAM [Concomitant]
     Active Substance: MIDAZOLAM HYDROCHLORIDE
     Indication: ANXIOLYTIC THERAPY
     Dosage: UNK, UNKNOWN
     Route: 065
  2. ALIMTA [Suspect]
     Active Substance: PEMETREXED DISODIUM
     Indication: METASTATIC BRONCHIAL CARCINOMA
     Dosage: 1000 MG, UNKNOWN
     Route: 042
     Dates: start: 20161215, end: 20161215

REACTIONS (5)
  - Malignant neoplasm progression [Unknown]
  - Paraplegia [Unknown]
  - Spinal cord compression [Unknown]
  - Bone marrow failure [Recovered/Resolved]
  - Staphylococcal sepsis [Recovered/Resolved]
